FAERS Safety Report 12876645 (Version 1)
Quarter: 2016Q4

REPORT INFORMATION
  Report Type: Spontaneous
  Country: US (occurrence: US)
  Receive Date: 20161022
  Receipt Date: 20161022
  Transmission Date: 20170207
  Serious: Yes (Other)
  Sender: FDA-Public Use
  Company Number: None

PATIENT
  Age: 32 Year
  Sex: Male
  Weight: 76.5 kg

DRUGS (2)
  1. ZOLOFT [Suspect]
     Active Substance: SERTRALINE HYDROCHLORIDE
     Indication: ANXIETY
     Dosage: QUANTITY:1 TABLET(S);?AT BEDTIME?ORAL
     Route: 048
     Dates: start: 20161006
  2. ZOLOFT [Suspect]
     Active Substance: SERTRALINE HYDROCHLORIDE
     Indication: DEPRESSION
     Dosage: QUANTITY:1 TABLET(S);?AT BEDTIME?ORAL
     Route: 048
     Dates: start: 20161006

REACTIONS (9)
  - Memory impairment [None]
  - Anger [None]
  - Intentional self-injury [None]
  - Physical assault [None]
  - Haemorrhage [None]
  - Alcohol use [None]
  - Screaming [None]
  - Aggression [None]
  - Loss of consciousness [None]

NARRATIVE: CASE EVENT DATE: 20161021
